FAERS Safety Report 4565487-2 (Version None)
Quarter: 2005Q1

REPORT INFORMATION
  Report Type: 
  Country: None (occurrence: None)
  Receive Date: 20050126
  Receipt Date: 20050110
  Transmission Date: 20050727
  Serious: No
  Sender: FDA-Public Use
  Company Number: US_0409105609

PATIENT
  Age: 13 Year
  Sex: Female
  Weight: 29 kg

DRUGS (2)
  1. STRATTERA [Suspect]
     Dosage: 40 MG/1 D
     Dates: start: 20040319
  2. CONCERTA [Concomitant]

REACTIONS (3)
  - ASPARTATE AMINOTRANSFERASE INCREASED [None]
  - BLOOD IRON INCREASED [None]
  - BLOOD LACTATE DEHYDROGENASE INCREASED [None]
